FAERS Safety Report 9666566 (Version 2)
Quarter: 2013Q4

REPORT INFORMATION
  Report Type: Spontaneous
  Country: US (occurrence: US)
  Receive Date: 20131104
  Receipt Date: 20131204
  Transmission Date: 20140711
  Serious: Yes (Other)
  Sender: FDA-Public Use
  Company Number: US-PFIZER INC-2013308380

PATIENT
  Age: 43 Year
  Sex: Female

DRUGS (1)
  1. NEURONTIN [Suspect]
     Indication: ALCOHOLISM
     Dosage: 300 MG, 1X/DAY (AT NIGHT)
     Dates: start: 201305, end: 201311

REACTIONS (5)
  - Off label use [Unknown]
  - Suicide attempt [Unknown]
  - Depression [Unknown]
  - Memory impairment [Unknown]
  - Sleep disorder [Recovered/Resolved]
